FAERS Safety Report 26070531 (Version 2)
Quarter: 2025Q4

REPORT INFORMATION
  Report Type: Report from Study
  Country: EU (occurrence: EU)
  Receive Date: 20251120
  Receipt Date: 20251125
  Transmission Date: 20260118
  Serious: Yes (Death, Other)
  Sender: JOHNSON AND JOHNSON
  Company Number: EU-JNJFOC-20251162378

PATIENT

DRUGS (7)
  1. DARATUMUMAB [Suspect]
     Active Substance: DARATUMUMAB
     Indication: Primary amyloidosis
     Route: 065
  2. BORTEZOMIB [Suspect]
     Active Substance: BORTEZOMIB
     Indication: Primary amyloidosis
     Route: 065
  3. DEXAMETHASONE [Suspect]
     Active Substance: DEXAMETHASONE
     Indication: Primary amyloidosis
     Route: 050
  4. MELPHALAN [Suspect]
     Active Substance: MELPHALAN
     Indication: Primary amyloidosis
     Route: 050
  5. PREDNISONE [Suspect]
     Active Substance: PREDNISONE
     Indication: Primary amyloidosis
     Route: 050
  6. RITUXIMAB [Suspect]
     Active Substance: RITUXIMAB
     Indication: Primary amyloidosis
     Route: 050
  7. CYCLOPHOSPHAMIDE [Suspect]
     Active Substance: CYCLOPHOSPHAMIDE
     Indication: Primary amyloidosis
     Route: 050

REACTIONS (5)
  - Neoplasm malignant [Fatal]
  - COVID-19 [Fatal]
  - Pneumonia [Unknown]
  - Sepsis [Unknown]
  - Off label use [Unknown]
